FAERS Safety Report 4439021-1 (Version None)
Quarter: 2004Q3

REPORT INFORMATION
  Report Type: 
  Country: None (occurrence: None)
  Receive Date: 20040901
  Receipt Date: 20040610
  Transmission Date: 20050211
  Serious: Yes (Death, Hospitalization, Other)
  Sender: FDA-Public Use
  Company Number: US-BRISTOL-MYERS SQUIBB COMPANY-12610978

PATIENT
  Age: 66 Year
  Sex: Male
  Weight: 83 kg

DRUGS (13)
  1. CISPLATIN [Suspect]
     Indication: PLEURAL MESOTHELIOMA
     Route: 042
     Dates: start: 20040212, end: 20040212
  2. PEMETREXED DISODIUM [Suspect]
     Indication: PLEURAL MESOTHELIOMA
     Route: 042
     Dates: start: 20040212, end: 20040212
  3. KYTRIL [Concomitant]
     Indication: PREMEDICATION
  4. DECADRON [Concomitant]
     Indication: PREMEDICATION
  5. COMPAZINE [Concomitant]
     Indication: NAUSEA
  6. FOLIC ACID [Concomitant]
     Indication: VITAMIN SUPPLEMENTATION
  7. NADOLOL [Concomitant]
     Indication: HYPERTENSION
  8. MEGESTROL [Concomitant]
     Indication: INCREASED APPETITE
  9. VITAMIN B-12 [Concomitant]
     Indication: VITAMIN SUPPLEMENTATION
  10. LIPITOR [Concomitant]
     Indication: BLOOD CHOLESTEROL INCREASED
  11. METOPROLOL [Concomitant]
     Indication: HYPERTENSION
  12. PHENERGAN HCL [Concomitant]
  13. LOMOTIL [Concomitant]
     Indication: DIARRHOEA

REACTIONS (44)
  - ABDOMINAL PAIN LOWER [None]
  - ANOREXIA [None]
  - ANURIA [None]
  - ANXIETY [None]
  - APNOEA [None]
  - ASTHENIA [None]
  - BASE EXCESS NEGATIVE [None]
  - BLOOD BICARBONATE DECREASED [None]
  - BLOOD CREATININE DECREASED [None]
  - BLOOD PH DECREASED [None]
  - BLOOD SODIUM DECREASED [None]
  - BLOOD UREA INCREASED [None]
  - BODY TEMPERATURE DECREASED [None]
  - CREATININE RENAL CLEARANCE DECREASED [None]
  - DEEP VEIN THROMBOSIS [None]
  - DEHYDRATION [None]
  - DIARRHOEA [None]
  - DYSPNOEA [None]
  - FATIGUE [None]
  - FEBRILE NEUTROPENIA [None]
  - GENERAL PHYSICAL HEALTH DETERIORATION [None]
  - HAEMATOCHEZIA [None]
  - HYPOTENSION [None]
  - HYPOVENTILATION [None]
  - INTERVERTEBRAL DISC DEGENERATION [None]
  - OEDEMA [None]
  - OEDEMA PERIPHERAL [None]
  - PANCYTOPENIA [None]
  - PCO2 INCREASED [None]
  - PITTING OEDEMA [None]
  - PLEURAL EFFUSION [None]
  - PLEURAL FIBROSIS [None]
  - PLEURAL MESOTHELIOMA [None]
  - PO2 INCREASED [None]
  - POLLAKIURIA [None]
  - POOR VENOUS ACCESS [None]
  - RESPIRATORY FAILURE [None]
  - RESPIRATORY RATE INCREASED [None]
  - SOMNOLENCE [None]
  - TACHYCARDIA [None]
  - THERAPEUTIC AGENT TOXICITY [None]
  - URINARY HESITATION [None]
  - URINARY TRACT INFECTION [None]
  - URINE OUTPUT DECREASED [None]
